FAERS Safety Report 5934804-0 (Version None)
Quarter: 2008Q4

REPORT INFORMATION
  Report Type: 
  Country: None (occurrence: None)
  Receive Date: 20081029
  Receipt Date: 20080417
  Transmission Date: 20090506
  Serious: No
  Sender: FDA-Public Use
  Company Number: PE-ASTRAZENECA-2008UW08883

PATIENT
  Age: 80 Year
  Sex: Female
  Weight: 75 kg

DRUGS (3)
  1. TENORETIC 100 [Suspect]
     Indication: HYPERTENSION
     Route: 048
     Dates: start: 20080413, end: 20080413
  2. TENORETIC 100 [Suspect]
     Route: 048
     Dates: start: 20000101, end: 20080412
  3. TENORETIC 100 [Suspect]
     Route: 048
     Dates: start: 20080414

REACTIONS (1)
  - BLOOD PRESSURE INCREASED [None]
